FAERS Safety Report 18494093 (Version 1)
Quarter: 2020Q4

REPORT INFORMATION
  Report Type: Spontaneous
  Country: US (occurrence: US)
  Receive Date: 20201112
  Receipt Date: 20201112
  Transmission Date: 20210114
  Serious: No
  Sender: FDA-Public Use
  Company Number: US-CIPLA LTD.-2020US03137

PATIENT

DRUGS (2)
  1. GABAPENTIN. [Suspect]
     Active Substance: GABAPENTIN
     Indication: POST HERPETIC NEURALGIA
     Dosage: UNK
     Route: 065
  2. GABAPENTIN. [Suspect]
     Active Substance: GABAPENTIN
     Dosage: UNK, 300 MILLIGRAM
     Route: 048
     Dates: start: 2019

REACTIONS (11)
  - Anger [Unknown]
  - Pruritus [Unknown]
  - Feeling abnormal [Unknown]
  - Affect lability [Unknown]
  - Depression [Unknown]
  - Pain [Unknown]
  - Aggression [Unknown]
  - Psychomotor hyperactivity [Unknown]
  - Impatience [Unknown]
  - Behaviour disorder [Unknown]
  - Anxiety [Unknown]
